FAERS Safety Report 8932116 (Version 1)
Quarter: 2012Q4

REPORT INFORMATION
  Report Type: Report from Study
  Country: US (occurrence: US)
  Receive Date: 20121128
  Receipt Date: 20121128
  Transmission Date: 20130627
  Serious: Yes (Hospitalization)
  Sender: FDA-Public Use
  Company Number: US-ROCHE-1136570

PATIENT
  Age: 60 Year
  Sex: Male
  Weight: 77.18 kg

DRUGS (2)
  1. CAPECITABINE [Suspect]
     Indication: COLON CANCER
     Dosage: 3 pills
     Route: 048
     Dates: start: 20120903, end: 20121107
  2. CAPECITABINE [Suspect]
     Dosage: 4 pills
     Route: 048
     Dates: start: 20120903, end: 20121107

REACTIONS (29)
  - Dysgeusia [Recovered/Resolved]
  - Middle insomnia [Not Recovered/Not Resolved]
  - Muscle spasms [Not Recovered/Not Resolved]
  - Muscle twitching [Not Recovered/Not Resolved]
  - Dizziness [Not Recovered/Not Resolved]
  - Headache [Not Recovered/Not Resolved]
  - Alopecia [Not Recovered/Not Resolved]
  - Erythema [Recovered/Resolved]
  - Dry skin [Recovered/Resolved]
  - Dry skin [Recovered/Resolved]
  - Decreased appetite [Recovered/Resolved]
  - Asthenia [Recovered/Resolved]
  - Oropharyngeal pain [Recovered/Resolved]
  - Retching [Unknown]
  - Insomnia [Recovered/Resolved]
  - Fatigue [Unknown]
  - Erythema [Recovering/Resolving]
  - Ageusia [Not Recovered/Not Resolved]
  - Chest discomfort [Recovering/Resolving]
  - Alopecia [Unknown]
  - Nausea [Recovering/Resolving]
  - Vomiting [Recovering/Resolving]
  - Diarrhoea [Recovering/Resolving]
  - Weight decreased [Recovering/Resolving]
  - Hypoaesthesia [Recovering/Resolving]
  - Dizziness [Recovering/Resolving]
  - Gastric disorder [Recovering/Resolving]
  - Hypotension [Recovering/Resolving]
  - Muscle spasms [Recovering/Resolving]
